FAERS Safety Report 4519086-9 (Version None)
Quarter: 2004Q4

REPORT INFORMATION
  Report Type: 
  Country: None (occurrence: None)
  Receive Date: 20041206
  Receipt Date: 20041127
  Transmission Date: 20050328
  Serious: Yes (Hospitalization)
  Sender: FDA-Public Use
  Company Number: 200419157US

PATIENT
  Sex: Male

DRUGS (7)
  1. LANTUS [Suspect]
     Indication: DIABETES MELLITUS NON-INSULIN-DEPENDENT
     Dosage: DOSE UNIT: UNITS
     Dates: start: 20040101
  2. HUMALOG [Concomitant]
     Dosage: DOSE: NOT PROVIDED
  3. GLUCOPHAGE [Concomitant]
     Dosage: DOSE: NOT PROVIDED
  4. PLAVIX [Concomitant]
     Dosage: DOSE: NOT PROVIDED
  5. ASPIRIN [Concomitant]
     Dosage: DOSE: NOT PROVIDED
  6. TRICOR [Concomitant]
     Dosage: DOSE: NOT PROVIDED
  7. LISINOPRIL [Concomitant]
     Dosage: DOSE: NOT PROVIDED

REACTIONS (2)
  - BLOOD GLUCOSE INCREASED [None]
  - CEREBROVASCULAR ACCIDENT [None]
